FAERS Safety Report 8585644-8 (Version None)
Quarter: 2012Q3

REPORT INFORMATION
  Report Type: 
  Country: None (occurrence: None)
  Receive Date: 20120810
  Receipt Date: 20120807
  Transmission Date: 20120928
  Serious: Yes (Hospitalization, Other)
  Sender: FDA-Public Use
  Company Number: EG-AMGEN-EGYSP2012049625

PATIENT
  Age: 5 Year
  Sex: Male

DRUGS (3)
  1. NPLATE [Suspect]
     Dosage: 7 MUG/KG, QWK
  2. NPLATE [Suspect]
     Indication: IDIOPATHIC THROMBOCYTOPENIC PURPURA
     Dosage: 1 MUG/KG, QWK
  3. NPLATE [Suspect]
     Dosage: 2 MUG/KG, QWK

REACTIONS (2)
  - THERAPEUTIC RESPONSE DECREASED [None]
  - BRONCHITIS [None]
